FAERS Safety Report 13224431 (Version 1)
Quarter: 2017Q1

REPORT INFORMATION
  Report Type: Report from Study
  Country: AR (occurrence: AR)
  Receive Date: 20170212
  Receipt Date: 20170212
  Transmission Date: 20170428
  Serious: Yes (Life-Threatening, Hospitalization)
  Sender: FDA-Public Use
  Company Number: PHHY2017AR020168

PATIENT
  Sex: Male

DRUGS (3)
  1. ENTRESTO [Suspect]
     Active Substance: SACUBITRIL\VALSARTAN
     Indication: CARDIAC FAILURE CHRONIC
     Dosage: 2 DF (50 MG), QD
     Route: 065
     Dates: start: 20161205
  2. ENTRESTO [Suspect]
     Active Substance: SACUBITRIL\VALSARTAN
     Dosage: 1 DF (50 MG), QOD
     Route: 065
     Dates: end: 20170202
  3. ENTRESTO [Suspect]
     Active Substance: SACUBITRIL\VALSARTAN
     Dosage: 1 DF, QD
     Route: 065

REACTIONS (4)
  - Malaise [Recovering/Resolving]
  - Apparent death [Recovering/Resolving]
  - Prescribed underdose [Unknown]
  - Inappropriate schedule of drug administration [Unknown]
